FAERS Safety Report 9166095 (Version 2)
Quarter: 2013Q2

REPORT INFORMATION
  Report Type: Spontaneous
  Country: CN (occurrence: CN)
  Receive Date: 20130315
  Receipt Date: 20130416
  Transmission Date: 20140414
  Serious: Yes (Hospitalization, Other)
  Sender: FDA-Public Use
  Company Number: CN-BAYER-2013-027873

PATIENT
  Age: 79 Year
  Sex: Male

DRUGS (1)
  1. BAYASPIRIN [Suspect]
     Dosage: UNK
     Route: 048
     Dates: start: 20130302, end: 20130305

REACTIONS (5)
  - Wrong drug administered [None]
  - Oedema peripheral [Not Recovered/Not Resolved]
  - Cardiac discomfort [None]
  - Gait disturbance [None]
  - Dizziness [Recovering/Resolving]
